FAERS Safety Report 9571464 (Version 1)
Quarter: 2013Q3

REPORT INFORMATION
  Report Type: Spontaneous
  Country: US (occurrence: None)
  Receive Date: 20130927
  Receipt Date: 20130927
  Transmission Date: 20140515
  Serious: Yes (Hospitalization, Disabling)
  Sender: FDA-Public Use
  Company Number: None

PATIENT
  Age: 88 Year
  Sex: Female
  Weight: 68.04 kg

DRUGS (8)
  1. CLONIDINE HCL [Suspect]
     Indication: BLOOD PRESSURE INCREASED
     Dosage: 1 TABLET, TWICE, MOUTH
     Route: 048
     Dates: start: 20130501, end: 20130501
  2. COQ10 [Concomitant]
  3. CENTRUM SILVER WOMEN OVER 50 [Concomitant]
  4. BROMELAIN [Concomitant]
  5. HAWTHORN [Concomitant]
  6. KRILL OIL [Concomitant]
  7. GARLIC [Concomitant]
  8. VITAMIN B12 [Concomitant]

REACTIONS (2)
  - Hallucination [None]
  - Panic attack [None]
